FAERS Safety Report 7501746-9 (Version None)
Quarter: 2011Q2

REPORT INFORMATION
  Report Type: 
  Country: None (occurrence: None)
  Receive Date: 20110523
  Receipt Date: 20110523
  Transmission Date: 20111010
  Serious: No
  Sender: FDA-Public Use
  Company Number: None

PATIENT
  Sex: Male

DRUGS (1)
  1. ENBREL [Suspect]
     Indication: PSORIASIS
     Dosage: 60MG BIW SQ
     Route: 058
     Dates: start: 20110224

REACTIONS (2)
  - ASTHENIA [None]
  - MEMORY IMPAIRMENT [None]
